FAERS Safety Report 9052977 (Version 1)
Quarter: 2013Q1

REPORT INFORMATION
  Report Type: Spontaneous
  Country: US (occurrence: US)
  Receive Date: 20130208
  Receipt Date: 20130208
  Transmission Date: 20140127
  Serious: No
  Sender: FDA-Public Use
  Company Number: US-009507513-1302USA002665

PATIENT
  Age: 20 None
  Sex: Female
  Weight: 77.98 kg

DRUGS (1)
  1. NUVARING [Suspect]
     Indication: CONTRACEPTION
     Dosage: UNK, 3 WEEKS IN 1 WEEK OUT
     Route: 067
     Dates: start: 20121227

REACTIONS (1)
  - Back pain [Not Recovered/Not Resolved]
